FAERS Safety Report 7513816-X (Version None)
Quarter: 2011Q2

REPORT INFORMATION
  Report Type: 
  Country: None (occurrence: None)
  Receive Date: 20110531
  Receipt Date: 20110520
  Transmission Date: 20111010
  Serious: Yes (Death, Other)
  Sender: FDA-Public Use
  Company Number: ES-UCBSA-032411

PATIENT
  Sex: Male

DRUGS (4)
  1. VIMPAT [Suspect]
     Indication: EPILEPSY
     Route: 048
     Dates: start: 20090916, end: 20110228
  2. OLANZAPINE [Concomitant]
     Indication: EPILEPSY
     Route: 048
  3. KEPPRA [Concomitant]
     Indication: EPILEPSY
     Route: 048
  4. CLONACEPAM [Concomitant]
     Indication: EPILEPSY

REACTIONS (1)
  - COMPLETED SUICIDE [None]
